FAERS Safety Report 15366677 (Version 1)
Quarter: 2018Q3

REPORT INFORMATION
  Report Type: Spontaneous
  Country: US (occurrence: US)
  Receive Date: 20180901
  Receipt Date: 20180901
  Transmission Date: 20181010
  Serious: Yes (Life-Threatening, Hospitalization)
  Sender: FDA-Public Use
  Company Number: None

PATIENT
  Age: 77 Year
  Sex: Male
  Weight: 110 kg

DRUGS (14)
  1. FUROSEMIDE 10 MG [Concomitant]
     Active Substance: FUROSEMIDE
  2. INSULIN LANTUS 10 UNITS [Concomitant]
  3. INSULIN REGULAR SLIDING SCALE [Concomitant]
  4. POTASSIUM 10 MEQ [Concomitant]
  5. PRAVASTATIN 20 MG [Concomitant]
     Active Substance: PRAVASTATIN
  6. ESCITALOPRAM [Concomitant]
     Active Substance: ESCITALOPRAM OXALATE
  7. ASPIRIN 81 MG [Concomitant]
     Active Substance: ASPIRIN
  8. DOCUSATE 500 MG [Concomitant]
  9. CLONIDINE 0.1 MG [Concomitant]
     Active Substance: CLONIDINE
  10. ACETAMINOPHEN 650 MG [Concomitant]
     Active Substance: ACETAMINOPHEN
  11. DILTIAZEM 180 MG [Concomitant]
  12. GLIMEPIRIDE 1 MG [Concomitant]
     Active Substance: GLIMEPIRIDE
  13. TOLNAFTATE 1% POWDER [Concomitant]
  14. RIVAROXABAN [Suspect]
     Active Substance: RIVAROXABAN
     Indication: ATRIAL FIBRILLATION
     Route: 048

REACTIONS (6)
  - Mental status changes [None]
  - Haemorrhage intracranial [None]
  - Social avoidant behaviour [None]
  - Unresponsive to stimuli [None]
  - Abnormal behaviour [None]
  - Dementia [None]

NARRATIVE: CASE EVENT DATE: 20180729
